FAERS Safety Report 9439926 (Version 2)
Quarter: 2020Q3

REPORT INFORMATION
  Report Type: Report from Study
  Country: US (occurrence: US)
  Receive Date: 20130805
  Receipt Date: 20140210
  Transmission Date: 20201105
  Serious: Yes (Other)
  Sender: FDA-Public Use
  Company Number: US-JNJFOC-20130716533

PATIENT
  Age: 33 Year
  Sex: Female
  Weight: 68.49 kg

DRUGS (17)
  1. PROTONIX [Concomitant]
     Active Substance: PANTOPRAZOLE SODIUM
     Indication: IMPAIRED GASTRIC EMPTYING
     Route: 048
     Dates: end: 20090918
  2. IBUPROFEN. [Concomitant]
     Active Substance: IBUPROFEN
     Indication: BACK PAIN
     Dosage: PRN
     Route: 048
     Dates: start: 20121115
  3. CISAPRIDE [Suspect]
     Active Substance: CISAPRIDE
     Indication: GASTROINTESTINAL MOTILITY DISORDER
     Route: 048
     Dates: start: 20090806, end: 20130725
  4. FENTANYL. [Concomitant]
     Active Substance: FENTANYL
     Indication: ENDOSCOPY
     Route: 042
     Dates: start: 20100714, end: 20100714
  5. LORATADINE. [Concomitant]
     Active Substance: LORATADINE
     Indication: RHINITIS ALLERGIC
     Route: 048
     Dates: start: 20120109
  6. VERSED [Concomitant]
     Active Substance: MIDAZOLAM HYDROCHLORIDE
     Indication: ENDOSCOPY
     Route: 042
     Dates: start: 20100714, end: 20100714
  7. RANITIDINE. [Concomitant]
     Active Substance: RANITIDINE
     Indication: IMPAIRED GASTRIC EMPTYING
     Route: 048
     Dates: start: 20090918, end: 20091018
  8. AMOXIL [Concomitant]
     Active Substance: AMOXICILLIN
     Indication: BRONCHITIS
     Route: 048
     Dates: start: 20110110, end: 20110120
  9. CISAPRIDE [Suspect]
     Active Substance: CISAPRIDE
     Indication: GASTROOESOPHAGEAL REFLUX DISEASE
     Route: 048
     Dates: start: 20090806, end: 20130725
  10. AMOXIL [Concomitant]
     Active Substance: AMOXICILLIN
     Indication: BRONCHITIS
     Route: 048
     Dates: start: 20100106, end: 20100116
  11. AMOXIL [Concomitant]
     Active Substance: AMOXICILLIN
     Indication: BRONCHITIS
     Route: 048
     Dates: start: 20110110, end: 20110120
  12. PROTONIX [Concomitant]
     Active Substance: PANTOPRAZOLE SODIUM
     Indication: IMPAIRED GASTRIC EMPTYING
     Route: 048
     Dates: start: 20091018
  13. SIMETHICONE (DIMETHICONE) [Concomitant]
     Active Substance: DIMETHICONE
     Indication: ENDOSCOPY
     Dosage: 30 CC
     Route: 048
     Dates: start: 20100714, end: 20100714
  14. AMOXIL [Concomitant]
     Active Substance: AMOXICILLIN
     Indication: PHARYNGITIS STREPTOCOCCAL
     Route: 048
     Dates: start: 20100106, end: 20100116
  15. AMOXIL [Concomitant]
     Active Substance: AMOXICILLIN
     Indication: PHARYNGITIS STREPTOCOCCAL
     Route: 048
     Dates: start: 20110110, end: 20110120
  16. SUCRALFATE. [Concomitant]
     Active Substance: SUCRALFATE
     Indication: ABDOMINAL PAIN
     Route: 065
     Dates: start: 20100925
  17. AMOXIL [Concomitant]
     Active Substance: AMOXICILLIN
     Indication: BRONCHITIS
     Route: 048
     Dates: start: 20100106, end: 20100116

REACTIONS (1)
  - Electrocardiogram QT prolonged [Recovered/Resolved]

NARRATIVE: CASE EVENT DATE: 20130709
